FAERS Safety Report 7084524-7 (Version None)
Quarter: 2010Q4

REPORT INFORMATION
  Report Type: 
  Country: None (occurrence: None)
  Receive Date: 20101104
  Receipt Date: 20101029
  Transmission Date: 20110411
  Serious: No
  Sender: FDA-Public Use
  Company Number: US-PFIZER INC-2010138355

PATIENT
  Sex: Male
  Weight: 68 kg

DRUGS (5)
  1. CAVERJECT [Suspect]
     Indication: PROSTATIC DISORDER
     Dosage: 20 UG, UNK
     Dates: start: 20100301, end: 20100901
  2. PENTOXIFYLLINE [Concomitant]
     Dosage: UNK
  3. GINKGO BILOBA [Concomitant]
     Dosage: UNK
  4. TAMSULOSIN [Concomitant]
     Dosage: UNK
  5. ATIVAN [Concomitant]
     Indication: SLEEP DISORDER
     Dosage: 4 MG, 1X/DAY

REACTIONS (1)
  - DRUG INEFFECTIVE [None]
